FAERS Safety Report 14822599 (Version 1)
Quarter: 2018Q2

REPORT INFORMATION
  Report Type: Report from Study
  Country: TW (occurrence: TW)
  Receive Date: 20180427
  Receipt Date: 20180427
  Transmission Date: 20180711
  Serious: Yes (Other)
  Sender: FDA-Public Use
  Company Number: PHHY2018TW074797

PATIENT
  Age: 45 Year
  Sex: Female

DRUGS (32)
  1. BUSCOPAN [Concomitant]
     Active Substance: BUTYLSCOPOLAMINE BROMIDE
     Dosage: 10 MG, UNK
     Route: 048
     Dates: start: 20160329, end: 20160405
  2. BUSCOPAN [Concomitant]
     Active Substance: BUTYLSCOPOLAMINE BROMIDE
     Dosage: 10 MG, UNK
     Route: 048
     Dates: start: 20161210, end: 20170331
  3. DICLOFENAC [Concomitant]
     Active Substance: DICLOFENAC
     Dosage: 25 MG, UNK
     Route: 048
     Dates: start: 20170812, end: 20170819
  4. BUTYLSCOPOLAMINE [Concomitant]
     Active Substance: BUTYLSCOPOLAMINE
     Indication: COLONOSCOPY
     Dosage: 20 MG, UNK
     Route: 030
     Dates: start: 20150423, end: 20150423
  5. TRANEXAMIC ACID. [Concomitant]
     Active Substance: TRANEXAMIC ACID
     Indication: PROPHYLAXIS
     Dosage: 250 MG, UNK
     Route: 048
     Dates: start: 20160503, end: 20160510
  6. BUSCOPAN [Concomitant]
     Active Substance: BUTYLSCOPOLAMINE BROMIDE
     Dosage: 10 MG, UNK
     Route: 048
     Dates: start: 20160603, end: 20160701
  7. MEDROXYPROGESTERON [Concomitant]
     Indication: DYSMENORRHOEA
     Dosage: 5 MG, UNK
     Route: 048
     Dates: start: 20160226, end: 20160305
  8. PHENAZOPYRIDINE. [Concomitant]
     Active Substance: PHENAZOPYRIDINE
     Indication: DYSURIA
     Dosage: 50 MG, UNK
     Route: 048
     Dates: start: 20150324
  9. ULTRACET [Concomitant]
     Active Substance: ACETAMINOPHEN\TRAMADOL HYDROCHLORIDE
     Indication: DYSURIA
     Dosage: 1 DF, UNK
     Route: 048
     Dates: start: 20150502, end: 20150530
  10. TRANEXAMIC ACID. [Concomitant]
     Active Substance: TRANEXAMIC ACID
     Dosage: 250 MG, UNK
     Route: 048
     Dates: start: 20160603, end: 20160610
  11. VAXIGRIP [Concomitant]
     Active Substance: INFLUENZA VIRUS VACCINE
     Indication: ANTIVIRAL PROPHYLAXIS
     Dosage: 1 DF (PCE), UNK
     Route: 030
     Dates: start: 20171024, end: 20171024
  12. TASIGNA [Suspect]
     Active Substance: NILOTINIB
     Dosage: 300 OT, UNK
     Route: 048
     Dates: start: 20150421
  13. PHENAZOPYRIDINE. [Concomitant]
     Active Substance: PHENAZOPYRIDINE
     Dosage: 50 MG, UNK
     Route: 048
     Dates: start: 20160603, end: 20160701
  14. MEPENZOLATE [Concomitant]
     Indication: PROPHYLAXIS
     Dosage: 7.5 MG, UNK
     Route: 048
     Dates: start: 20150417, end: 20150421
  15. NICARDIPINE [Concomitant]
     Active Substance: NICARDIPINE
     Indication: PROPHYLAXIS
     Dosage: 20 MG, UNK
     Route: 048
     Dates: start: 20150417, end: 20150421
  16. HYDROXYUREA. [Concomitant]
     Active Substance: HYDROXYUREA
     Indication: CHRONIC MYELOID LEUKAEMIA
     Dosage: 1 DF, UNK
     Route: 048
     Dates: start: 20150402, end: 20150414
  17. ACETAMINOPHEN. [Concomitant]
     Active Substance: ACETAMINOPHEN
     Indication: DYSMENORRHOEA
     Dosage: 500 MG, UNK
     Route: 048
     Dates: start: 20150714, end: 20150811
  18. ACETAMINOPHEN. [Concomitant]
     Active Substance: ACETAMINOPHEN
     Indication: DYSURIA
     Dosage: 500 MG, UNK
     Route: 048
     Dates: start: 20180123, end: 20180130
  19. DICLOFENAC [Concomitant]
     Active Substance: DICLOFENAC
     Dosage: 25 MG, UNK
     Route: 048
     Dates: start: 20171226, end: 20180123
  20. LEVONORGESTREL. [Concomitant]
     Active Substance: LEVONORGESTREL
     Indication: DYSMENORRHOEA
     Dosage: 20 UG, UNK
     Route: 067
     Dates: start: 20160503, end: 20160503
  21. DULCOLAX NOS [Concomitant]
     Active Substance: BISACODYL OR DOCUSATE SODIUM
     Indication: UROGRAM
     Dosage: 2 DF, UNK
     Route: 048
     Dates: start: 20170925, end: 20170925
  22. ULTRAVIST [Concomitant]
     Active Substance: IOPROMIDE
     Indication: PROPHYLAXIS
     Dosage: 30 ML, UNK
     Route: 042
     Dates: start: 20170925, end: 20170925
  23. TASIGNA [Suspect]
     Active Substance: NILOTINIB
     Indication: CHRONIC MYELOID LEUKAEMIA
     Dosage: 600 OT, UNK
     Route: 048
     Dates: start: 20150414, end: 20150421
  24. BUSCOPAN [Concomitant]
     Active Substance: BUTYLSCOPOLAMINE BROMIDE
     Indication: DYSMENORRHOEA
     Dosage: 10 MG, UNK
     Route: 048
     Dates: start: 20150502
  25. BUSCOPAN [Concomitant]
     Active Substance: BUTYLSCOPOLAMINE BROMIDE
     Dosage: 10 MG, UNK
     Route: 048
     Dates: start: 20160902, end: 20160930
  26. DICLOFENAC [Concomitant]
     Active Substance: DICLOFENAC
     Indication: DYSMENORRHOEA
     Dosage: 25 MG, UNK
     Route: 048
     Dates: start: 20150324, end: 20150501
  27. MEDROXYPROGESTERON [Concomitant]
     Dosage: 5 MG, UNK
     Route: 048
     Dates: start: 20160329, end: 20160405
  28. PHENAZOPYRIDINE. [Concomitant]
     Active Substance: PHENAZOPYRIDINE
     Dosage: 50 MG, UNK
     Route: 048
     Dates: start: 20151229, end: 20160226
  29. MIRENA [Concomitant]
     Active Substance: LEVONORGESTREL
     Indication: DYSMENORRHOEA
     Dosage: UNK
     Route: 065
     Dates: start: 20160503, end: 20160503
  30. PHENAZOPYRIDINE. [Concomitant]
     Active Substance: PHENAZOPYRIDINE
     Dosage: 50 MG, UNK
     Route: 048
     Dates: start: 20160329, end: 20160426
  31. PHENAZOPYRIDINE. [Concomitant]
     Active Substance: PHENAZOPYRIDINE
     Dosage: 50 MG, UNK
     Route: 048
     Dates: start: 20161210, end: 20170331
  32. DIMETHYLPOLYSILOXANE [Concomitant]
     Indication: UROGRAM
     Dosage: 6 DF, UNK
     Route: 048
     Dates: start: 20170925, end: 20170925

REACTIONS (3)
  - Nephrolithiasis [Not Recovered/Not Resolved]
  - Scoliosis [Not Recovered/Not Resolved]
  - Hydronephrosis [Not Recovered/Not Resolved]

NARRATIVE: CASE EVENT DATE: 20170708
